FAERS Safety Report 19935026 (Version 2)
Quarter: 2021Q4

REPORT INFORMATION
  Report Type: Spontaneous
  Country: US (occurrence: US)
  Receive Date: 20211008
  Receipt Date: 20211220
  Transmission Date: 20220303
  Serious: No
  Sender: FDA-Public Use
  Company Number: US-BLUEPRINT MEDICINES CORPORATION-SP-US-2021-001663

PATIENT
  Sex: Female

DRUGS (2)
  1. AYVAKIT [Suspect]
     Active Substance: AVAPRITINIB
     Indication: Systemic mastocytosis
     Route: 048
     Dates: start: 20210827
  2. AYVAKIT [Suspect]
     Active Substance: AVAPRITINIB
     Route: 048
     Dates: start: 20210827

REACTIONS (10)
  - Haemoglobin abnormal [Unknown]
  - Weight increased [Unknown]
  - Flatulence [Unknown]
  - Peripheral swelling [Unknown]
  - Periorbital oedema [Unknown]
  - Fluid retention [Unknown]
  - Alopecia [Unknown]
  - Diarrhoea [Unknown]
  - Oedema [Unknown]
  - Face oedema [Unknown]
